FAERS Safety Report 5417801-3 (Version None)
Quarter: 2007Q3

REPORT INFORMATION
  Report Type: 
  Country: None (occurrence: None)
  Receive Date: 20070815
  Receipt Date: 20070807
  Transmission Date: 20080115
  Serious: No
  Sender: FDA-Public Use
  Company Number: 155817USA

PATIENT
  Age: 42 Year
  Sex: Female

DRUGS (2)
  1. COPAXONE [Suspect]
     Indication: MULTIPLE SCLEROSIS
     Dosage: 20 MG, SUBCUTANEOUS
     Route: 058
     Dates: end: 20020101
  2. BACLOFEN [Concomitant]

REACTIONS (4)
  - ASTHENIA [None]
  - RASH GENERALISED [None]
  - TOXIC SHOCK SYNDROME [None]
  - VIRAL INFECTION [None]
